FAERS Safety Report 9011658 (Version 2)
Quarter: 2013Q1

REPORT INFORMATION
  Report Type: Report from Study
  Country: CA (occurrence: CA)
  Receive Date: 20130108
  Receipt Date: 20130213
  Transmission Date: 20140127
  Serious: Yes (Other)
  Sender: FDA-Public Use
  Company Number: CA-ROCHE-1177320

PATIENT
  Sex: Female
  Weight: 90 kg

DRUGS (13)
  1. ACTEMRA [Suspect]
     Indication: RHEUMATOID ARTHRITIS
     Route: 042
     Dates: start: 201204, end: 20120830
  2. ACTEMRA [Suspect]
     Route: 042
     Dates: start: 20121128
  3. ACTEMRA [Suspect]
     Route: 065
     Dates: start: 20121219
  4. ACTEMRA [Suspect]
     Route: 042
     Dates: start: 20120419, end: 20121219
  5. ASPIRIN [Concomitant]
  6. BUTALBITAL [Concomitant]
  7. CAFFEINE [Concomitant]
  8. IMITREX [Concomitant]
  9. HORMONES NOS [Concomitant]
  10. VITAMIN D [Concomitant]
  11. VITAMIN D NOS [Concomitant]
  12. GLUCOSAMINE [Concomitant]
  13. ALEVE [Concomitant]

REACTIONS (6)
  - Pharyngeal oedema [Recovering/Resolving]
  - Urticaria [Recovering/Resolving]
  - Oral mucosal blistering [Recovering/Resolving]
  - Headache [Recovering/Resolving]
  - Oropharyngeal pain [Recovering/Resolving]
  - Stomatitis [Unknown]
